FAERS Safety Report 5903254-5 (Version None)
Quarter: 2008Q3

REPORT INFORMATION
  Report Type: 
  Country: None (occurrence: None)
  Receive Date: 20080926
  Receipt Date: 20080916
  Transmission Date: 20090109
  Serious: Yes (Hospitalization)
  Sender: FDA-Public Use
  Company Number: GXKR2008CA08958

PATIENT
  Age: 83 Year
  Sex: Male
  Weight: 63 kg

DRUGS (24)
  1. NITROGLYCERIN [Suspect]
     Indication: BLOOD PRESSURE INCREASED
     Dosage: INTRAVENOUS
     Route: 042
     Dates: start: 20080826, end: 20080826
  2. PHENYLEPHRINE HCL INJ USP (NGX) (PHENYLEPHRINE) UNKNOWN [Suspect]
     Indication: HYPOTENSION
     Dosage: 480 UG, INTRAVENOUS
     Route: 042
     Dates: start: 20080826, end: 20080826
  3. PROTAMINE SULFATE [Suspect]
     Indication: HEPARIN NEUTRALISATION THERAPY
     Dosage: 300 MG, INTRAVENOUS
     Route: 042
     Dates: start: 20080826, end: 20080826
  4. TRANEXAMIC ACID INJ BP (NGX) (TRANEXAMIC ACID) UNKNOWN [Suspect]
     Indication: HAEMORRHAGE PROPHYLAXIS
     Dosage: 13 G, INTRAVENOUS
     Route: 042
     Dates: start: 20080826, end: 20080826
  5. MAGNESIUM SULFATE [Suspect]
     Indication: ELECTROLYTE SUBSTITUTION THERAPY
     Dosage: 5 G; INTRAVENOUS
     Route: 042
     Dates: start: 20080826, end: 20080826
  6. HEPARIN [Suspect]
     Dosage: 30000 IU/DAY; INTRAVENOUS
     Route: 042
  7. BACITRACIN [Concomitant]
  8. FENTANYL-100 [Concomitant]
  9. MANNITOL [Concomitant]
  10. VALIUM [Concomitant]
  11. MIDAZOLAM HCL [Concomitant]
  12. PAPAVERINE (PAPAVERINE) [Concomitant]
  13. ROCURONIUM BROMIDE [Concomitant]
  14. EPINEPHRINE [Concomitant]
  15. SEVOFLURANE [Concomitant]
  16. SODIUM BICARBONATE IN PLASTIC CONTAINER [Concomitant]
  17. CEFAZOLIN [Concomitant]
  18. THIOPENTAL SODIUM [Concomitant]
  19. DDAVP /UNK/ (DESMOPRESSIN) [Concomitant]
  20. INSULIN (INSULIN) [Concomitant]
  21. PROTAMINE SULFATE [Suspect]
  22. PROTAMINE SULFATE [Suspect]
  23. TRANEXAMIC ACID INJ BP (NGX) (TRANEXAMIC ACID) UNKNOWN [Suspect]
  24. MAGNESIUM SULFATE [Suspect]

REACTIONS (2)
  - CEREBRAL INFARCTION [None]
  - GRAND MAL CONVULSION [None]
